FAERS Safety Report 14074086 (Version 4)
Quarter: 2018Q1

REPORT INFORMATION
  Report Type: Spontaneous
  Country: JP (occurrence: JP)
  Receive Date: 20171011
  Receipt Date: 20180315
  Transmission Date: 20180508
  Serious: Yes (Death, Other)
  Sender: FDA-Public Use
  Company Number: JP-009507513-1710JPN000964J

PATIENT
  Age: 66 Year
  Sex: Male
  Weight: 51 kg

DRUGS (16)
  1. CALONAL [Concomitant]
     Active Substance: ACETAMINOPHEN
     Indication: PROPHYLAXIS
     Dosage: 400 MG, QD
     Route: 048
     Dates: start: 20170622, end: 20170622
  2. CALONAL [Concomitant]
     Active Substance: ACETAMINOPHEN
     Dosage: 400 MG, QID
     Route: 048
  3. ASPARA POTASSIUM [Concomitant]
     Active Substance: POTASSIUM ASPARTATE
     Dosage: 300 MG, TID
     Route: 048
  4. NOVAMIN (PROCHLORPERAZINE MALEATE) [Concomitant]
     Active Substance: PROCHLORPERAZINE MALEATE
     Dosage: 5 MG, TID
     Route: 048
  5. KEYTRUDA [Suspect]
     Active Substance: PEMBROLIZUMAB
     Indication: SQUAMOUS CELL CARCINOMA OF LUNG
     Dosage: 200 MG, Q3W
     Route: 041
     Dates: start: 20170622, end: 20170622
  6. PRIMPERAN [Concomitant]
     Active Substance: METOCLOPRAMIDE HYDROCHLORIDE
     Dosage: 10 MG, QD
     Route: 051
  7. DECADRON [Concomitant]
     Active Substance: DEXAMETHASONE
     Dosage: 2 MG, QD
     Route: 048
     Dates: start: 20170615
  8. OXYCONTIN [Concomitant]
     Active Substance: OXYCODONE HYDROCHLORIDE
     Dosage: 25 MG, BID
     Route: 048
  9. TAKECAB [Concomitant]
     Active Substance: VONOPRAZAN FUMURATE
     Indication: PROPHYLAXIS
     Dosage: 20 MG, QD
     Route: 048
     Dates: end: 20170627
  10. NAIXAN [Concomitant]
     Active Substance: NAPROXEN SODIUM
     Dosage: 100 MG, TID
     Route: 048
  11. OXINORM (OXYCODONE HYDROCHLORIDE) [Concomitant]
     Active Substance: OXYCODONE HYDROCHLORIDE
     Dosage: 10 MG, QD
     Route: 048
  12. ELIETEN [Concomitant]
     Active Substance: METOCLOPRAMIDE
     Dosage: 5.0 MG, QD
     Route: 048
     Dates: start: 20170616
  13. SPIRIVA [Concomitant]
     Active Substance: TIOTROPIUM BROMIDE MONOHYDRATE
     Indication: BRONCHITIS
     Dosage: 2.5 MICROGRAM, BID
     Route: 065
     Dates: start: 20170623
  14. RESUTAMIN KOWA [Concomitant]
     Indication: PROPHYLAXIS
     Dosage: 50 MG, QD
     Route: 048
     Dates: start: 20170622, end: 20170622
  15. DENOTAS [Concomitant]
     Active Substance: CALCIUM CARBONATE\CHOLECALCIFEROL\MAGNESIUM CARBONATE
     Indication: PROPHYLAXIS
     Dosage: 2 DF, QD
     Route: 048
  16. RANMARK [Concomitant]
     Active Substance: DENOSUMAB
     Dosage: 120 MG, QD
     Route: 051
     Dates: start: 20170615, end: 20170615

REACTIONS (5)
  - Nausea [Recovered/Resolved]
  - Malignant neoplasm progression [Fatal]
  - Cancer pain [Recovering/Resolving]
  - Bronchitis [Recovered/Resolved]
  - Hypocalcaemia [Recovered/Resolved]

NARRATIVE: CASE EVENT DATE: 20170623
